FAERS Safety Report 4598592-5 (Version None)
Quarter: 2005Q1

REPORT INFORMATION
  Report Type: 
  Country: None (occurrence: None)
  Receive Date: 20050301
  Receipt Date: 20050301
  Transmission Date: 20050727
  Serious: No
  Sender: FDA-Public Use
  Company Number: None

PATIENT
  Age: 19 Year
  Weight: 74.8435 kg

DRUGS (1)
  1. PROPECIA [Suspect]
     Dosage: 1 DAILY

REACTIONS (5)
  - ALCOHOL USE [None]
  - DEPRESSION [None]
  - DISTURBANCE IN SOCIAL BEHAVIOUR [None]
  - IMPRISONMENT [None]
  - IRRITABILITY [None]
